FAERS Safety Report 9482006 (Version 1)
Quarter: 2013Q3

REPORT INFORMATION
  Report Type: Spontaneous
  Country: US (occurrence: US)
  Receive Date: 20130828
  Receipt Date: 20130828
  Transmission Date: 20140515
  Serious: Yes (Other)
  Sender: FDA-Public Use
  Company Number: US-ASTRAZENECA-2013SE64697

PATIENT
  Age: 68 Year
  Sex: Female
  Weight: 89.8 kg

DRUGS (11)
  1. RHINOCORT AQUA [Suspect]
     Indication: MULTIPLE ALLERGIES
     Dosage: 32 MCG, 1 SPRAY EACH
     Route: 045
     Dates: start: 1998
  2. MOBIC [Concomitant]
     Indication: SYSTEMIC LUPUS ERYTHEMATOSUS
     Route: 048
  3. PREVACID [Concomitant]
     Indication: GASTROOESOPHAGEAL REFLUX DISEASE
     Route: 048
  4. HCTZ [Concomitant]
     Indication: DIURETIC THERAPY
     Route: 048
  5. AMLODIPINE [Concomitant]
     Indication: BLOOD PRESSURE ABNORMAL
     Route: 048
  6. VITAMIN D3 [Concomitant]
     Indication: VITAMIN SUPPLEMENTATION
     Route: 048
  7. LIMBITROL [Concomitant]
     Indication: FIBROMYALGIA
     Dosage: 5 MG/12.5, QID
     Route: 048
  8. TYLENOL OTC [Concomitant]
     Indication: PAIN
     Dosage: PRN
     Route: 048
  9. TYLENOL OTC [Concomitant]
     Indication: DISCOMFORT
     Dosage: PRN
     Route: 048
  10. RESTASIS [Concomitant]
     Indication: DRY EYE
     Dosage: DROPS
     Route: 061
  11. PREDNISONE [Concomitant]
     Route: 048

REACTIONS (15)
  - Osteoarthritis [Unknown]
  - Dry eye [Unknown]
  - Dry mouth [Unknown]
  - Ear discomfort [Unknown]
  - Feeling cold [Unknown]
  - Feeling hot [Unknown]
  - Upper-airway cough syndrome [Unknown]
  - Balance disorder [Unknown]
  - Sjogren^s syndrome [Unknown]
  - Raynaud^s phenomenon [Unknown]
  - Rheumatoid arthritis [Unknown]
  - Spinal osteoarthritis [Unknown]
  - Nasal congestion [Unknown]
  - Intentional drug misuse [Unknown]
  - Drug dose omission [Unknown]
